FAERS Safety Report 6172968-7 (Version None)
Quarter: 2009Q2

REPORT INFORMATION
  Report Type: 
  Country: None (occurrence: None)
  Receive Date: 20090430
  Receipt Date: 20090422
  Transmission Date: 20091009
  Serious: Yes (Life-Threatening, Hospitalization, Other)
  Sender: FDA-Public Use
  Company Number: CA-BAYER-200912299NA

PATIENT
  Age: 16 Year
  Sex: Female

DRUGS (1)
  1. YASMIN [Suspect]
     Indication: ACNE
     Route: 048

REACTIONS (5)
  - APPARENT LIFE THREATENING EVENT [None]
  - CHOLELITHIASIS [None]
  - GALLBLADDER DISORDER [None]
  - PROCEDURAL COMPLICATION [None]
  - SURGERY [None]
